FAERS Safety Report 9715680 (Version 2)
Quarter: 2013Q4

REPORT INFORMATION
  Report Type: Spontaneous
  Country: US (occurrence: US)
  Receive Date: 20131127
  Receipt Date: 20131127
  Transmission Date: 20140711
  Serious: Yes (Hospitalization)
  Sender: FDA-Public Use
  Company Number: US-ACCORD-020218

PATIENT
  Age: 67 Year
  Sex: Male

DRUGS (7)
  1. TRAMADOL [Suspect]
     Indication: ANALGESIC THERAPY
     Route: 048
  2. RASAGILINE [Suspect]
     Indication: PRODUCT USED FOR UNKNOWN INDICATION
  3. ZIPRASIDONE [Suspect]
     Indication: HALLUCINATION
     Route: 048
  4. AMANTADINE [Concomitant]
     Route: 048
  5. CLOZAPINE [Concomitant]
     Route: 048
  6. DEPAKOTE [Concomitant]
     Route: 048
  7. CARBIDOPA/LEVODOPA [Concomitant]
     Dosage: 25/100 MG

REACTIONS (3)
  - Serotonin syndrome [Recovering/Resolving]
  - Rhabdomyolysis [Recovering/Resolving]
  - Renal failure acute [Recovering/Resolving]
